FAERS Safety Report 9080598 (Version 1)
Quarter: 2013Q1

REPORT INFORMATION
  Report Type: Report from Study
  Country: US (occurrence: US)
  Receive Date: 20130130
  Receipt Date: 20130130
  Transmission Date: 20140127
  Serious: No
  Sender: FDA-Public Use
  Company Number: US-ABBOTT-12P-163-0972481-00

PATIENT
  Age: 51 Year
  Sex: Female

DRUGS (11)
  1. HUMIRA 40 MG/0.8 ML PEN [Suspect]
     Indication: PSORIATIC ARTHROPATHY
     Route: 058
  2. NEXIUM [Concomitant]
     Indication: DYSPEPSIA
  3. NAPROXEN [Concomitant]
     Indication: BACK PAIN
  4. FLEXERIL [Concomitant]
     Indication: MUSCLE SPASMS
  5. MULTIVITAMIN [Concomitant]
     Indication: VITAMIN SUPPLEMENTATION
  6. D3 [Concomitant]
     Indication: VITAMIN SUPPLEMENTATION
  7. B6 [Concomitant]
     Indication: VITAMIN SUPPLEMENTATION
  8. VITAMIN E [Concomitant]
     Indication: VITAMIN SUPPLEMENTATION
  9. SUPER B COMPLEX [Concomitant]
     Indication: VITAMIN SUPPLEMENTATION
  10. B12-VITAMIIN [Concomitant]
     Indication: VITAMIN SUPPLEMENTATION
  11. FISH OIL [Concomitant]
     Indication: VITAMIN SUPPLEMENTATION

REACTIONS (3)
  - Device malfunction [Recovered/Resolved]
  - Injection site pain [Recovered/Resolved]
  - Incorrect route of drug administration [Recovered/Resolved]
